FAERS Safety Report 11029536 (Version 9)
Quarter: 2016Q1

REPORT INFORMATION
  Report Type: Spontaneous
  Country: CA (occurrence: CA)
  Receive Date: 20150415
  Receipt Date: 20160218
  Transmission Date: 20160525
  Serious: Yes (Hospitalization, Other)
  Sender: FDA-Public Use
  Company Number: CA-ROCHE-1563164

PATIENT
  Sex: Female

DRUGS (7)
  1. XOLAIR [Suspect]
     Active Substance: OMALIZUMAB
     Indication: ASTHMA
     Route: 058
     Dates: start: 20150114
  2. XOLAIR [Suspect]
     Active Substance: OMALIZUMAB
     Route: 058
     Dates: start: 20150729
  3. XOLAIR [Suspect]
     Active Substance: OMALIZUMAB
     Route: 058
     Dates: start: 20150826
  4. XOLAIR [Suspect]
     Active Substance: OMALIZUMAB
     Route: 058
     Dates: start: 20150211
  5. XOLAIR [Suspect]
     Active Substance: OMALIZUMAB
     Route: 058
     Dates: start: 20150630
  6. SALINE [Concomitant]
     Route: 065
  7. OXYGEN. [Concomitant]
     Active Substance: OXYGEN

REACTIONS (15)
  - Mastocytosis [Unknown]
  - Flushing [Not Recovered/Not Resolved]
  - Body temperature decreased [Unknown]
  - Blood pressure increased [Unknown]
  - Anaphylactic reaction [Unknown]
  - Intestinal perforation [Unknown]
  - Abscess [Unknown]
  - Nausea [Unknown]
  - Monocytosis [Unknown]
  - Vomiting [Recovered/Resolved]
  - Respiratory tract inflammation [Not Recovered/Not Resolved]
  - Oxygen saturation decreased [Unknown]
  - Chills [Recovered/Resolved]
  - Hypersensitivity [Unknown]
  - Oesophageal candidiasis [Unknown]
